FAERS Safety Report 23711039 (Version 1)
Quarter: 2024Q2

REPORT INFORMATION
  Report Type: Report from Study
  Country: US (occurrence: US)
  Receive Date: 20240405
  Receipt Date: 20240405
  Transmission Date: 20240716
  Serious: Yes (Death, Other)
  Sender: FDA-Public Use
  Company Number: US-JNJFOC-20240381844

PATIENT

DRUGS (7)
  1. SIMPONI ARIA [Suspect]
     Active Substance: GOLIMUMAB
     Indication: Rheumatoid arthritis
     Dosage: 2MG/KG OR 4MG/KG, EVERY 12 WEEKS THROUGH WEEK 48.
     Route: 041
  2. SIMPONI ARIA [Suspect]
     Active Substance: GOLIMUMAB
     Route: 058
  3. METHOTREXATE [Suspect]
     Active Substance: METHOTREXATE
     Indication: Rheumatoid arthritis
     Route: 042
  4. ALEFACEPT [Concomitant]
     Active Substance: ALEFACEPT
  5. EFALIZUMAB [Concomitant]
     Active Substance: EFALIZUMAB
  6. RITUXIMAB [Concomitant]
     Active Substance: RITUXIMAB
  7. NATALIZUMAB [Concomitant]
     Active Substance: NATALIZUMAB

REACTIONS (21)
  - Myocardial infarction [Fatal]
  - Cardiac disorder [Fatal]
  - Basal cell carcinoma [Unknown]
  - Colon cancer [Unknown]
  - Lung neoplasm malignant [Unknown]
  - Neoplasm malignant [Unknown]
  - Bladder cancer [Unknown]
  - Ovarian neoplasm [Unknown]
  - Benign neoplasm [Unknown]
  - Thyroid neoplasm [Unknown]
  - Lipoma [Unknown]
  - Fibrous histiocytoma [Unknown]
  - Benign breast neoplasm [Unknown]
  - Alanine aminotransferase abnormal [Unknown]
  - Urinary tract infection [Unknown]
  - Upper respiratory tract infection [Unknown]
  - Bronchitis [Unknown]
  - Nasopharyngitis [Unknown]
  - Sinusitis [Unknown]
  - Infusion related reaction [Unknown]
  - Off label use [Unknown]
